FAERS Safety Report 7646041-2 (Version None)
Quarter: 2011Q3

REPORT INFORMATION
  Report Type: 
  Country: None (occurrence: None)
  Receive Date: 20110801
  Receipt Date: 20110725
  Transmission Date: 20111222
  Serious: Yes (Life-Threatening)
  Sender: FDA-Public Use
  Company Number: JP-BRISTOL-MYERS SQUIBB COMPANY-15935992

PATIENT
  Age: 61 Year
  Sex: Male

DRUGS (3)
  1. TRUVADA [Suspect]
     Indication: HIV INFECTION
     Dosage: 1DF= 1 TABLET/DAY.
     Route: 048
     Dates: start: 20060404, end: 20100510
  2. NORVIR [Suspect]
     Indication: HIV INFECTION
     Route: 048
     Dates: start: 20041004, end: 20100510
  3. REYATAZ [Suspect]
     Indication: HIV INFECTION
     Dosage: 400MG/DAY ON 09AUG04-03OCT04 300MG/DAY ON 04OCT04-10MAY2010.
     Route: 048
     Dates: start: 20040809, end: 20100510

REACTIONS (1)
  - ANGINA UNSTABLE [None]
